FAERS Safety Report 5315589-8 (Version None)
Quarter: 2007Q2

REPORT INFORMATION
  Report Type: 
  Country: None (occurrence: None)
  Receive Date: 20070503
  Receipt Date: 20070430
  Transmission Date: 20071010
  Serious: Yes (Other)
  Sender: FDA-Public Use
  Company Number: NLWYE745815JUN05

PATIENT
  Sex: Male

DRUGS (11)
  1. RAPAMUNE [Suspect]
     Indication: PROPHYLAXIS AGAINST TRANSPLANT REJECTION
     Dosage: LOADING DOSE OF 15 MG
     Route: 048
     Dates: start: 20041101, end: 20041101
  2. RAPAMUNE [Suspect]
     Dosage: LOADING DOSE OF 12 MG
     Dates: start: 20041101, end: 20041101
  3. RAPAMUNE [Suspect]
     Route: 048
     Dates: start: 20041101, end: 20041115
  4. RAPAMUNE [Suspect]
     Dosage: UNKNOWN
     Route: 048
     Dates: start: 20041116
  5. METHYLPREDNISOLONE 16MG TAB [Concomitant]
     Indication: PROPHYLAXIS AGAINST TRANSPLANT REJECTION
     Dosage: 500 MG
     Dates: start: 20041101, end: 20041101
  6. MYCOPHENOLATE MOFETIL [Concomitant]
     Indication: PROPHYLAXIS AGAINST TRANSPLANT REJECTION
     Dates: start: 20041101
  7. DACLIZUMAB [Concomitant]
     Indication: PROPHYLAXIS AGAINST TRANSPLANT REJECTION
     Dosage: 2 DOSAGES OF 1MG/KG TEN DAYS APART
     Dates: start: 20041101
  8. PREDNISOLONE [Concomitant]
     Indication: PROPHYLAXIS AGAINST TRANSPLANT REJECTION
     Dosage: 120 MG TAPERED TO 30 MG BY DAY 8
     Dates: start: 20041101, end: 20041101
  9. PREDNISOLONE [Concomitant]
     Dosage: 27.5 MG BY DAY 21
     Dates: start: 20041101, end: 20041101
  10. PREDNISOLONE [Concomitant]
     Dosage: 25 MG BY DAY 30
     Dates: start: 20041101, end: 20041101
  11. PREDNISOLONE [Concomitant]
     Dosage: 25 MG TAPERED BY 2.5 MG EACH MONTH TO 7.5 MG DAILY
     Dates: start: 20041201, end: 20050601

REACTIONS (4)
  - BRONCHIAL CARCINOMA [None]
  - IMPAIRED HEALING [None]
  - LYMPHOCELE [None]
  - WOUND INFECTION [None]
